FAERS Safety Report 4587484-3 (Version None)
Quarter: 2005Q1

REPORT INFORMATION
  Report Type: 
  Country: None (occurrence: None)
  Receive Date: 20050215
  Receipt Date: 20050201
  Transmission Date: 20050727
  Serious: Yes (Hospitalization, Disabling)
  Sender: FDA-Public Use
  Company Number: 002#4#2005-00044

PATIENT
  Age: 47 Year
  Sex: Female
  Weight: 55.3388 kg

DRUGS (4)
  1. PPA/CPM 75/8MG(OTC) (PHENYLPROPANOLAMINE HCL, CHLO [Suspect]
     Indication: SINUS DISORDER
     Dosage: ORAL
     Route: 048
     Dates: start: 19780101, end: 19980101
  2. ROBITUSSIN [Suspect]
     Indication: BRONCHITIS
     Dosage: ORAL
     Route: 048
     Dates: start: 19780101, end: 19980101
  3. SUDAFED 12 HOUR [Suspect]
     Indication: SINUS DISORDER
     Dates: start: 19780101, end: 19980101
  4. DEXATRIM [Suspect]
     Indication: WEIGHT DECREASED
     Dosage: ORAL
     Route: 048
     Dates: start: 19971201, end: 19980101

REACTIONS (14)
  - AREFLEXIA [None]
  - ARTERY DISSECTION [None]
  - BLOOD PRESSURE INCREASED [None]
  - CEREBELLAR SYNDROME [None]
  - CEREBRAL INFARCTION [None]
  - COORDINATION ABNORMAL [None]
  - DIFFICULTY IN WALKING [None]
  - DYSPHAGIA [None]
  - IMPAIRED WORK ABILITY [None]
  - INTRACRANIAL ANEURYSM [None]
  - POSITIVE ROMBERGISM [None]
  - SENSORY LOSS [None]
  - SUBARACHNOID HAEMORRHAGE [None]
  - THALAMIC SYNDROME [None]
